FAERS Safety Report 23882899 (Version 1)
Quarter: 2024Q2

REPORT INFORMATION
  Report Type: Spontaneous
  Country: GB (occurrence: GB)
  Receive Date: 20240522
  Receipt Date: 20240522
  Transmission Date: 20240716
  Serious: Yes (Disabling, Other)
  Sender: FDA-Public Use
  Company Number: GB-MHRA-TPP21750811C7988680YC1714309110167

PATIENT
  Age: 64 Year
  Sex: Female
  Weight: 72 kg

DRUGS (6)
  1. CLARITHROMYCIN [Suspect]
     Active Substance: CLARITHROMYCIN
     Indication: Otitis media acute
     Dosage: 500 MILLIGRAM, TWO TIMES A DAY, FOR 7 DAYS, TO TREA...
     Route: 065
     Dates: start: 20240423
  2. BRINZOLAMIDE [Concomitant]
     Active Substance: BRINZOLAMIDE
     Indication: Product used for unknown indication
     Dosage: 2 GTT DROPS, TWO TIMES A DAY (ONE DROP BOTH EYES- TWICE DAILY)
     Route: 065
     Dates: start: 20231020
  3. ESOMEPRAZOLE [Concomitant]
     Active Substance: ESOMEPRAZOLE
     Indication: Product used for unknown indication
     Dosage: 1 DOSAGE FORM, TWO TIMES A DAY (UNTIL SHE HAD OGD)
     Route: 065
     Dates: start: 20231020
  4. FLUTICASONE PROPIONATE [Concomitant]
     Active Substance: FLUTICASONE PROPIONATE
     Indication: Product used for unknown indication
     Dosage: 4 DOSAGE FORM, TWO TIMES A DAY (TWO SPRAYS TWICE DAILY IN BOTH NOSTRILS FOR 2 W)
     Route: 065
     Dates: start: 20231020, end: 20240404
  5. METOCLOPRAMIDE [Concomitant]
     Active Substance: METOCLOPRAMIDE
     Indication: Product used for unknown indication
     Dosage: UNK, TAKE ONE 3 TIMES/DAY AS NEEDED
     Route: 065
     Dates: start: 20240328, end: 20240329
  6. TIMOLOL [Concomitant]
     Active Substance: TIMOLOL
     Indication: Product used for unknown indication
     Dosage: 2 GTT DROPS, ONCE A DAY (ONE DROP BOTH EYES- ONCE DAILY)
     Route: 065
     Dates: start: 20231020

REACTIONS (2)
  - Dizziness [Recovered/Resolved]
  - Altered visual depth perception [Recovered/Resolved]

NARRATIVE: CASE EVENT DATE: 20240428
